FAERS Safety Report 16002559 (Version 2)
Quarter: 2020Q3

REPORT INFORMATION
  Report Type: Report from Study
  Country: US (occurrence: US)
  Receive Date: 20190225
  Receipt Date: 20200928
  Transmission Date: 20201102
  Serious: No
  Sender: FDA-Public Use
  Company Number: US-SA-2019SA045718

PATIENT

DRUGS (2)
  1. DUPILUMAB [Suspect]
     Active Substance: DUPILUMAB
     Dosage: 300 MG, QOW
     Route: 058
     Dates: start: 2019, end: 20190601
  2. DUPILUMAB [Suspect]
     Active Substance: DUPILUMAB
     Indication: DERMATITIS ATOPIC
     Dosage: 600 MG, 1X
     Route: 058
     Dates: start: 20190201, end: 20190201

REACTIONS (6)
  - Lacrimation increased [Unknown]
  - Lung disorder [Unknown]
  - Eye pruritus [Unknown]
  - Nipple pain [Unknown]
  - Road traffic accident [Unknown]
  - Pruritus [Unknown]

NARRATIVE: CASE EVENT DATE: 2019
